FAERS Safety Report 9971788 (Version 1)
Quarter: 2014Q1

REPORT INFORMATION
  Report Type: Report from Study
  Country: US (occurrence: US)
  Receive Date: 20140306
  Receipt Date: 20140306
  Transmission Date: 20141002
  Serious: Yes (Other)
  Sender: FDA-Public Use
  Company Number: US-ABBVIE-13P-163-1153114-00

PATIENT
  Age: 64 Year
  Sex: Female

DRUGS (2)
  1. HUMIRA [Suspect]
     Indication: RHEUMATOID ARTHRITIS
     Dosage: PER PATIENT ON MED FOR 2 YEARS
     Route: 058
     Dates: start: 2011, end: 201303
  2. HUMIRA [Suspect]
     Route: 058
     Dates: start: 20131003

REACTIONS (2)
  - Ankle fracture [Unknown]
  - Incision site infection [Unknown]
